FAERS Safety Report 7779625-1 (Version None)
Quarter: 2011Q3

REPORT INFORMATION
  Report Type: 
  Country: None (occurrence: None)
  Receive Date: 20110927
  Receipt Date: 20110921
  Transmission Date: 20111222
  Serious: Yes (Death, Other)
  Sender: FDA-Public Use
  Company Number: US-CELGENEUS-163-20785-11092815

PATIENT
  Sex: Female
  Weight: 66.738 kg

DRUGS (1)
  1. THALOMID [Suspect]
     Indication: MULTIPLE MYELOMA
     Dosage: 50 MILLIGRAM
     Route: 048
     Dates: start: 20110414, end: 20110516

REACTIONS (3)
  - DEATH [None]
  - HIP FRACTURE [None]
  - FALL [None]
